FAERS Safety Report 23327670 (Version 1)
Quarter: 2023Q4

REPORT INFORMATION
  Report Type: Spontaneous
  Country: US (occurrence: None)
  Receive Date: 20231221
  Receipt Date: 20231221
  Transmission Date: 20240109
  Serious: Yes (Disabling)
  Sender: FDA-Public Use
  Company Number: None

PATIENT
  Age: 74 Year
  Sex: Female
  Weight: 49.5 kg

DRUGS (12)
  1. DUPIXENT [Suspect]
     Active Substance: DUPILUMAB
     Indication: Nasal polyps
     Dosage: EVERY 2 WEEKS INTRAMUSCULAR?
     Route: 030
  2. DUPIXENT [Suspect]
     Active Substance: DUPILUMAB
     Indication: Eczema
  3. CYANOCOBALAMIN [Suspect]
     Active Substance: CYANOCOBALAMIN
  4. NEXIUM [Concomitant]
     Active Substance: ESOMEPRAZOLE MAGNESIUM
  5. CELEBREX [Concomitant]
     Active Substance: CELECOXIB
  6. TIROSINT [Concomitant]
  7. ESTRADIOL [Concomitant]
     Active Substance: ESTRADIOL
  8. ALVESCO AND ALBUEROL [Concomitant]
  9. VITAMIN D [Concomitant]
     Active Substance: VITAMIN D NOS
  10. COLESTIPOL HYDROCHLORIDE [Concomitant]
     Active Substance: COLESTIPOL HYDROCHLORIDE
  11. MUNICEX [Concomitant]
  12. FEXOFENODINE [Concomitant]

REACTIONS (10)
  - Back pain [None]
  - Arthralgia [None]
  - Decreased activity [None]
  - Movement disorder [None]
  - Middle insomnia [None]
  - Therapy cessation [None]
  - Joint swelling [None]
  - Vitamin B12 decreased [None]
  - Ehlers-Danlos syndrome [None]
  - Blood iron increased [None]

NARRATIVE: CASE EVENT DATE: 20230515
